FAERS Safety Report 15935177 (Version 1)
Quarter: 2019Q1

REPORT INFORMATION
  Report Type: Spontaneous
  Country: FR (occurrence: FR)
  Receive Date: 20190207
  Receipt Date: 20190207
  Transmission Date: 20190417
  Serious: Yes (Life-Threatening, Hospitalization)
  Sender: FDA-Public Use
  Company Number: PHHY2019FR028364

PATIENT
  Age: 63 Year
  Sex: Female

DRUGS (2)
  1. RIFAMPICIN [Suspect]
     Active Substance: RIFAMPIN
     Indication: MEDICAL DEVICE SITE JOINT INFECTION
     Dosage: 1400 MG, UNK (600 + 800 MG)
     Route: 048
     Dates: start: 20181001, end: 20181101
  2. TARGOCID [Suspect]
     Active Substance: TEICOPLANIN
     Indication: MEDICAL DEVICE SITE JOINT INFECTION
     Dosage: 900 MG, UNK
     Route: 048
     Dates: start: 20181005, end: 20181106

REACTIONS (4)
  - Eosinophilia [Recovered/Resolved]
  - Rash [Recovered/Resolved]
  - Traumatic lung injury [Recovered/Resolved]
  - Drug reaction with eosinophilia and systemic symptoms [Recovered/Resolved]

NARRATIVE: CASE EVENT DATE: 20181101
